FAERS Safety Report 7088970-7 (Version None)
Quarter: 2010Q4

REPORT INFORMATION
  Report Type: 
  Country: None (occurrence: None)
  Receive Date: 20101108
  Receipt Date: 20101029
  Transmission Date: 20110411
  Serious: Yes (Hospitalization, Disabling)
  Sender: FDA-Public Use
  Company Number: JP-GILEAD-2010-0030262

PATIENT
  Sex: Male

DRUGS (13)
  1. TRUVADA [Suspect]
     Indication: HIV INFECTION
     Route: 048
     Dates: start: 20070207, end: 20090617
  2. TRUVADA [Suspect]
     Route: 048
     Dates: start: 20100127
  3. RETROVIR [Suspect]
     Indication: HIV INFECTION
     Route: 048
     Dates: start: 19961227, end: 20050921
  4. EPIVIR [Suspect]
     Indication: HIV INFECTION
     Route: 048
     Dates: start: 19970228, end: 20050921
  5. LEXIVA [Suspect]
     Indication: HIV INFECTION
     Route: 048
     Dates: start: 20090128, end: 20090617
  6. EPZICOM [Suspect]
     Indication: HIV INFECTION
     Route: 048
     Dates: start: 20090617, end: 20100127
  7. INTELENCE [Suspect]
     Indication: HIV INFECTION
     Route: 048
     Dates: start: 20090617, end: 20100127
  8. INVIRASE [Suspect]
     Indication: HIV INFECTION
     Route: 048
     Dates: start: 19971003, end: 20050921
  9. NORVIR [Concomitant]
     Indication: HIV INFECTION
     Route: 048
     Dates: start: 20090128, end: 20090617
  10. EFAVIRENZ [Concomitant]
     Indication: HIV INFECTION
     Route: 048
     Dates: start: 20070207, end: 20070221
  11. EFAVIRENZ [Concomitant]
     Dates: start: 20050921, end: 20051004
  12. KALETRA [Concomitant]
     Indication: HIV INFECTION
     Route: 048
     Dates: start: 20070221, end: 20090128
  13. ISENTRESS [Concomitant]
     Indication: HIV INFECTION
     Dates: start: 20100127

REACTIONS (3)
  - SPASTIC PARAPLEGIA [None]
  - SPINAL CORD DISORDER [None]
  - VITAMIN B12 DEFICIENCY [None]
